FAERS Safety Report 19514752 (Version 1)
Quarter: 2021Q3

REPORT INFORMATION
  Report Type: Report from Study
  Country: None (occurrence: BR)
  Receive Date: 20210710
  Receipt Date: 20210710
  Transmission Date: 20211014
  Serious: Yes (Disabling)
  Sender: FDA-Public Use
  Company Number: BR-ABBVIE-21K-020-3983663-00

PATIENT
  Sex: Female
  Weight: 65 kg

DRUGS (3)
  1. ACECLOFENAC [Concomitant]
     Active Substance: ACECLOFENAC
     Indication: PRODUCT USED FOR UNKNOWN INDICATION
     Dosage: MAGISTRAL FORMULATION
     Route: 048
     Dates: start: 2011
  2. HUMIRA [Suspect]
     Active Substance: ADALIMUMAB
     Indication: RHEUMATOID ARTHRITIS
     Route: 058
     Dates: start: 20130110, end: 202103
  3. TRAMAL [Concomitant]
     Active Substance: TRAMADOL
     Indication: PRODUCT USED FOR UNKNOWN INDICATION
     Dosage: MAGISTRAL FORMULATION
     Route: 048
     Dates: start: 2011

REACTIONS (2)
  - Arthralgia [Not Recovered/Not Resolved]
  - Gait inability [Unknown]
